FAERS Safety Report 4466001-2 (Version None)
Quarter: 2004Q3

REPORT INFORMATION
  Report Type: 
  Country: None (occurrence: None)
  Receive Date: 20040930
  Receipt Date: 20040914
  Transmission Date: 20050211
  Serious: Yes (Hospitalization)
  Sender: FDA-Public Use
  Company Number: B0345265A

PATIENT
  Age: 72 Year
  Sex: Female
  Weight: 98.3852 kg

DRUGS (4)
  1. TEMOVATE [Suspect]
     Dosage: TOPICAL
     Route: 061
  2. ENALAPRIL MALEATE [Concomitant]
  3. FRUSEMIDE [Concomitant]
  4. IBUPROFEN [Concomitant]

REACTIONS (17)
  - ADRENAL INSUFFICIENCY [None]
  - ASTHENIA [None]
  - BACK PAIN [None]
  - BLOOD PRESSURE INCREASED [None]
  - BONE DENSITY DECREASED [None]
  - COMPRESSION FRACTURE [None]
  - CONTUSION [None]
  - CUSHING'S SYNDROME [None]
  - ECCHYMOSIS [None]
  - EOSINOPHILIA [None]
  - LYMPHOCYTOSIS [None]
  - OEDEMA PERIPHERAL [None]
  - PITTING OEDEMA [None]
  - PYREXIA [None]
  - URINARY TRACT INFECTION [None]
  - VITAMIN D DECREASED [None]
  - WEIGHT INCREASED [None]
